FAERS Safety Report 25193341 (Version 7)
Quarter: 2025Q4

REPORT INFORMATION
  Report Type: Report from Study
  Country: EU (occurrence: EU)
  Receive Date: 20250414
  Receipt Date: 20251109
  Transmission Date: 20260117
  Serious: Yes (Life-Threatening, Hospitalization)
  Sender: ABBVIE
  Company Number: EU-ABBVIE-6225332

PATIENT
  Age: 74 Year
  Sex: Female

DRUGS (78)
  1. VENETOCLAX [Suspect]
     Active Substance: VENETOCLAX
     Indication: Acute myeloid leukaemia
     Dosage: 100 MILLIGRAM
     Route: 048
     Dates: start: 20241112, end: 20241205
  2. VENETOCLAX [Suspect]
     Active Substance: VENETOCLAX
     Indication: Acute myeloid leukaemia
     Dosage: 100 MILLIGRAM
     Route: 048
     Dates: start: 20241101, end: 20241103
  3. VENETOCLAX [Suspect]
     Active Substance: VENETOCLAX
     Indication: Acute myeloid leukaemia
     Dosage: 100 MILLIGRAM
     Route: 048
     Dates: start: 20241209, end: 20241229
  4. LEUCOVORIN [Concomitant]
     Active Substance: LEUCOVORIN\LEUCOVORIN CALCIUM
     Indication: Vitamin supplementation
     Dosage: 15 MG
     Route: 048
     Dates: start: 2024
  5. MEROPENEM [Concomitant]
     Active Substance: MEROPENEM
     Indication: Sepsis
     Dosage: 2 GRAM
     Route: 042
     Dates: start: 20241105, end: 20241119
  6. ACYCLOVIR [Concomitant]
     Active Substance: ACYCLOVIR
     Indication: Antiviral prophylaxis
     Dosage: 400 MG
     Route: 048
     Dates: start: 20241028
  7. NYSTATIN [Concomitant]
     Active Substance: NYSTATIN
     Indication: Antifungal prophylaxis
     Dosage: TIME INTERVAL: 0.33333333 DAYS: 1
     Route: 048
     Dates: start: 20241030
  8. LEVOTHYROXINE SODIUM [Concomitant]
     Active Substance: LEVOTHYROXINE SODIUM
     Indication: Hypothyroidism
     Dosage: 100, FREQUENCY TEXT: DAILY
     Route: 048
     Dates: start: 1998
  9. ENOXAPARIN SODIUM [Concomitant]
     Active Substance: ENOXAPARIN SODIUM
     Indication: Thrombosis prophylaxis
     Dosage: 4000, FREQUENCY TEXT: 2 TIMES PER DAY
     Route: 058
     Dates: start: 20241202, end: 20250103
  10. ATORVASTATIN\EZETIMIBE [Concomitant]
     Active Substance: ATORVASTATIN\EZETIMIBE
     Indication: Arteriosclerosis coronary artery
     Dosage: 10/40 MG, FREQUENCY TEXT: DAILY
     Route: 048
     Dates: start: 2021, end: 20241102
  11. POSACONAZOLE [Concomitant]
     Active Substance: POSACONAZOLE
     Indication: Antifungal prophylaxis
     Dosage: 300 GRAM, FREQUENCY TEXT: DAILY
     Route: 048
     Dates: start: 20241127
  12. POSACONAZOLE [Concomitant]
     Active Substance: POSACONAZOLE
     Indication: Antifungal prophylaxis
     Dosage: 300 MILLIGRAM, FREQUENCY TEXT: DAILY
     Route: 048
     Dates: start: 20241028, end: 20241103
  13. PANTOPRAZOLE SODIUM [Concomitant]
     Active Substance: PANTOPRAZOLE SODIUM
     Indication: Gastrointestinal disorder prophylaxis
     Dosage: 40 MILLIGRAM, FREQUENCY TEXT: DAILY
     Route: 048
     Dates: start: 20241107, end: 20241126
  14. METOPROLOL [Concomitant]
     Active Substance: METOPROLOL
     Indication: Hypertension
     Dosage: 100 MG
     Route: 048
     Dates: start: 20241102, end: 20241201
  15. METOPROLOL [Concomitant]
     Active Substance: METOPROLOL
     Indication: Hypertension
     Dosage: 100 MG
     Route: 048
     Dates: start: 20241202
  16. FILGRASTIM [Concomitant]
     Active Substance: FILGRASTIM
     Indication: Blood disorder prophylaxis
     Dosage: 30, FREQUENCY TEXT: DAILY
     Route: 058
     Dates: start: 20250101, end: 20250101
  17. FILGRASTIM [Concomitant]
     Active Substance: FILGRASTIM
     Indication: Blood disorder prophylaxis
     Dosage: 30, FREQUENCY TEXT: DAILY
     Route: 058
     Dates: start: 20250103, end: 20250104
  18. FILGRASTIM [Concomitant]
     Active Substance: FILGRASTIM
     Indication: Blood disorder prophylaxis
     Dosage: 30
     Route: 058
     Dates: start: 20250127, end: 20250128
  19. FILGRASTIM [Concomitant]
     Active Substance: FILGRASTIM
     Indication: Blood disorder prophylaxis
     Dosage: 30, FREQUENCY TEXT: DAILY
     Route: 058
     Dates: start: 20241205, end: 20241205
  20. FILGRASTIM [Concomitant]
     Active Substance: FILGRASTIM
     Indication: Blood disorder prophylaxis
     Dosage: 30
     Route: 058
     Dates: start: 20250107, end: 20250122
  21. ALLOPURINOL [Concomitant]
     Active Substance: ALLOPURINOL
     Indication: Prophylaxis
     Dosage: 300 MILLIGRAM
     Route: 048
     Dates: start: 20250228
  22. ALLOPURINOL [Concomitant]
     Active Substance: ALLOPURINOL
     Indication: Prophylaxis
     Dosage: 300 MILLIGRAM, FREQUENCY TEXT: DAILY
     Route: 048
     Dates: start: 20241028, end: 20241103
  23. DUPHALAC [Concomitant]
     Active Substance: LACTULOSE
     Indication: Constipation prophylaxis
     Dosage: TIME INTERVAL: 0.33333333 DAYS: 15 ML
     Route: 048
     Dates: start: 20241106, end: 20241202
  24. DUPHALAC [Concomitant]
     Active Substance: LACTULOSE
     Indication: Constipation prophylaxis
     Dosage: TIME INTERVAL: AS NECESSARY: 15 ML
     Route: 048
     Dates: start: 20241202
  25. CHOLECALCIFEROL [Concomitant]
     Active Substance: CHOLECALCIFEROL
     Indication: Osteoporosis prophylaxis
     Dosage: 25000, FREQUENCY TEXT: EVERY 2 WEEKS
     Route: 048
     Dates: start: 2024, end: 20241030
  26. SOTALOL [Concomitant]
     Active Substance: SOTALOL
     Indication: Atrial fibrillation
     Dosage: 40 MG, FREQUENCY TEXT: 2 TIMES PER DAY
     Route: 048
     Dates: start: 2021, end: 20241102
  27. APIXABAN [Concomitant]
     Active Substance: APIXABAN
     Indication: Thrombosis prophylaxis
     Dosage: 5 MG, FREQUENCY TEXT: 2 TIMES PER DAY
     Route: 048
     Dates: start: 2024, end: 20241230
  28. ONDANSETRON [Concomitant]
     Active Substance: ONDANSETRON
     Indication: Prophylaxis of nausea and vomiting
     Dosage: 8 MILLIGRAM, FREQUENCY TEXT: DAILY
     Route: 048
     Dates: start: 20241101, end: 20241103
  29. ONDANSETRON [Concomitant]
     Active Substance: ONDANSETRON
     Indication: Prophylaxis of nausea and vomiting
     Dosage: 8 MILLIGRAM, FREQUENCY TEXT: DAILY
     Route: 048
     Dates: start: 20241112, end: 20241115
  30. ONDANSETRON [Concomitant]
     Active Substance: ONDANSETRON
     Indication: Prophylaxis of nausea and vomiting
     Dosage: TIME INTERVAL: AS NECESSARY: 8 MILLIGRAM, FREQUENCY TEXT: AS NEEDED
     Route: 048
     Dates: start: 20241209, end: 20250107
  31. PERINDOPRIL ARGININE [Concomitant]
     Active Substance: PERINDOPRIL ARGININE
     Indication: Hypertension
     Dosage: 15 MILLIGRAM, FREQUENCY TEXT: DAILY
     Route: 048
     Dates: start: 20241031, end: 20241101
  32. MOVICOL [Concomitant]
     Active Substance: POLYETHYLENE GLYCOL 3350\POTASSIUM CHLORIDE\SODIUM BICARBONATE\SODIUM CHLORIDE
     Indication: Constipation prophylaxis
     Dosage: TIME INTERVAL: AS NECESSARY: 1, FREQUENCY TEXT: AS NEEDED
     Route: 048
     Dates: start: 20241202
  33. CANRENONE [Concomitant]
     Active Substance: CANRENONE
     Indication: Hypertension
     Dosage: 200 MILLIGRAM, FREQUENCY TEXT: DAILY
     Route: 048
     Dates: start: 20241103, end: 20241103
  34. SULFAMETHOXAZOLE\TRIMETHOPRIM [Concomitant]
     Active Substance: SULFAMETHOXAZOLE\TRIMETHOPRIM
     Indication: Antibiotic prophylaxis
     Dosage: 160/800 MG
     Route: 048
     Dates: start: 20241028
  35. CHLORPHENIRAMINE MALEATE [Concomitant]
     Active Substance: CHLORPHENIRAMINE MALEATE
     Indication: Hypersensitivity
     Dosage: 10 MILLIGRAM, FREQUENCY TEXT: DAILY
     Route: 042
     Dates: start: 20241105, end: 20241125
  36. CHLORHEXIDINE [Concomitant]
     Active Substance: CHLORHEXIDINE
     Indication: Antibiotic prophylaxis
     Dosage: TIME INTERVAL: 0.33333333 DAYS: 1
     Route: 048
     Dates: start: 20241030, end: 20241103
  37. CHLORHEXIDINE [Concomitant]
     Active Substance: CHLORHEXIDINE
     Indication: Antibiotic prophylaxis
     Dosage: TIME INTERVAL: 0.33333333 DAYS: 1
     Route: 048
     Dates: start: 20241202
  38. FUROSEMIDE [Concomitant]
     Active Substance: FUROSEMIDE
     Indication: Diuretic therapy
     Dosage: 20 MILLIGRAM
     Route: 042
     Dates: start: 20241103, end: 20241103
  39. FUROSEMIDE [Concomitant]
     Active Substance: FUROSEMIDE
     Indication: Diuretic therapy
     Dosage: 20 MILLIGRAM
     Route: 042
     Dates: start: 20241111, end: 20241115
  40. FUROSEMIDE [Concomitant]
     Active Substance: FUROSEMIDE
     Indication: Diuretic therapy
     Dosage: 20 MILLIGRAM
     Route: 042
     Dates: start: 20241105, end: 20241108
  41. SODIUM CHLORIDE [Concomitant]
     Active Substance: SODIUM CHLORIDE
     Indication: Fluid replacement
     Dosage: 500 MILLILITER, FREQUENCY TEXT: DAILY
     Route: 042
     Dates: start: 20250107, end: 20250107
  42. SODIUM CHLORIDE [Concomitant]
     Active Substance: SODIUM CHLORIDE
     Indication: Fluid replacement
     Dosage: TIME INTERVAL: AS NECESSARY: 1, FREQUENCY TEXT: AS NEEDED
     Route: 042
     Dates: start: 20250108, end: 20250126
  43. SODIUM CHLORIDE [Concomitant]
     Active Substance: SODIUM CHLORIDE
     Indication: Fluid replacement
     Dosage: TIME INTERVAL: AS NECESSARY: 500 MILLILITER, FREQUENCY TEXT: AS NEEDED
     Route: 042
     Dates: start: 20241031, end: 20241201
  44. POTASSIUM CHLORIDE [Concomitant]
     Active Substance: POTASSIUM CHLORIDE
     Indication: Prophylaxis
     Dosage: TIME INTERVAL: 0.33333333 DAYS: 12000 MG, FREQUENCY TEXT: DAILY
     Route: 048
     Dates: start: 20241103, end: 20241103
  45. POTASSIUM CHLORIDE [Concomitant]
     Active Substance: POTASSIUM CHLORIDE
     Indication: Prophylaxis
     Dosage: 1200 MG, FREQUENCY TEXT: DAILY
     Route: 048
     Dates: start: 20241122, end: 20241126
  46. POTASSIUM CHLORIDE [Concomitant]
     Active Substance: POTASSIUM CHLORIDE
     Indication: Prophylaxis
     Dosage: 1200 MG, FREQUENCY TEXT: DAILY
     Route: 048
     Dates: start: 20250127, end: 20250212
  47. AZACITIDINE [Suspect]
     Active Substance: AZACITIDINE
     Indication: Acute myeloid leukaemia
     Dosage: 75 MG/M2 BSA
     Route: 048
     Dates: start: 20241209, end: 20241213
  48. AZACITIDINE [Suspect]
     Active Substance: AZACITIDINE
     Indication: Acute myeloid leukaemia
     Dosage: 75 MG/M2 BSA
     Route: 065
     Dates: start: 20241101, end: 20241103
  49. AZACITIDINE [Suspect]
     Active Substance: AZACITIDINE
     Indication: Acute myeloid leukaemia
     Dosage: 75 MG/M2 BSA
     Route: 048
     Dates: start: 20250310, end: 20250314
  50. AZACITIDINE [Suspect]
     Active Substance: AZACITIDINE
     Indication: Acute myeloid leukaemia
     Dosage: DAILY DOSE (MG/M2 BSA): 37,5
     Route: 048
     Dates: start: 20250522, end: 20250523
  51. AZACITIDINE [Suspect]
     Active Substance: AZACITIDINE
     Indication: Acute myeloid leukaemia
     Dosage: 75 MG/M2 BSA
     Route: 048
     Dates: start: 20241216, end: 20241217
  52. AZACITIDINE [Suspect]
     Active Substance: AZACITIDINE
     Indication: Acute myeloid leukaemia
     Dosage: 75 MG/M2 BSA
     Route: 065
     Dates: start: 20250317, end: 20250318
  53. AZACITIDINE [Suspect]
     Active Substance: AZACITIDINE
     Indication: Acute myeloid leukaemia
     Dosage: 75 MG/M2 BSA
     Route: 065
     Dates: start: 20241111, end: 20241115
  54. AZACITIDINE [Suspect]
     Active Substance: AZACITIDINE
     Indication: Acute myeloid leukaemia
     Dosage: DAILY DOSE (MG/M2 BSA): 37,5
     Route: 048
     Dates: start: 20250526, end: 20250530
  55. AZACITIDINE [Suspect]
     Active Substance: AZACITIDINE
     Indication: Acute myeloid leukaemia
     Dosage: DAILY DOSE (MG/M2 BSA): 27.94
     Route: 048
     Dates: start: 20250630, end: 20250704
  56. AZACITIDINE [Suspect]
     Active Substance: AZACITIDINE
     Indication: Acute myeloid leukaemia
     Dosage: DAILY DOSE (MG/M2 BSA):27.94
     Route: 048
     Dates: start: 20250707, end: 20250708
  57. AZACITIDINE [Suspect]
     Active Substance: AZACITIDINE
     Indication: Acute myeloid leukaemia
     Dosage: DAILY DOSE (MG/M2 BSA):27.94
     Route: 048
     Dates: start: 20250804, end: 20250808
  58. AZACITIDINE [Suspect]
     Active Substance: AZACITIDINE
     Indication: Acute myeloid leukaemia
     Dosage: DAILY DOSE (MG/M2 BSA):27.94
     Route: 048
     Dates: start: 20250811, end: 20250812
  59. AZACITIDINE [Suspect]
     Active Substance: AZACITIDINE
     Indication: Acute myeloid leukaemia
     Dosage: DAILY DOSE (MG/M2 BSA):27.94
     Route: 048
     Dates: start: 20250915, end: 20250919
  60. AZACITIDINE [Suspect]
     Active Substance: AZACITIDINE
     Indication: Acute myeloid leukaemia
     Dosage: DAILY DOSE (MG/M2 BSA):27.94
     Route: 048
     Dates: start: 20250922, end: 20250923
  61. AZACITIDINE [Suspect]
     Active Substance: AZACITIDINE
     Indication: Acute myeloid leukaemia
     Dosage: DAILY DOSE (MG/M2 BSA):27.94
     Route: 048
     Dates: start: 20250804, end: 20250808
  62. AZACITIDINE [Suspect]
     Active Substance: AZACITIDINE
     Indication: Acute myeloid leukaemia
     Dosage: DAILY DOSE (MG/M2 BSA):27.94
     Route: 048
     Dates: start: 20250811, end: 20250812
  63. AZACITIDINE [Suspect]
     Active Substance: AZACITIDINE
     Indication: Acute myeloid leukaemia
     Dosage: DAILY DOSE (MG/M2 BSA):27.94
     Route: 048
     Dates: start: 20250915, end: 20250919
  64. AZACITIDINE [Suspect]
     Active Substance: AZACITIDINE
     Indication: Acute myeloid leukaemia
     Dosage: DAILY DOSE (MG/M2 BSA):27.94
     Route: 048
     Dates: start: 20250922, end: 20250923
  65. OMEPRAZOLE [Concomitant]
     Active Substance: OMEPRAZOLE
     Indication: Gastrointestinal disorder prophylaxis
     Dosage: FREQUENCY TEXT: DAILY
     Route: 042
     Dates: start: 20250108, end: 20250114
  66. OMEPRAZOLE [Concomitant]
     Active Substance: OMEPRAZOLE
     Indication: Gastrointestinal disorder prophylaxis
     Dosage: FREQUENCY TEXT: DAILY
     Route: 048
     Dates: start: 20241028, end: 20241030
  67. RASBURICASE [Concomitant]
     Active Substance: RASBURICASE
     Indication: Metabolic disorder prophylaxis
     Dosage: 7.5 MILLIGRAM
     Route: 042
     Dates: start: 20241111, end: 20241115
  68. RASBURICASE [Concomitant]
     Active Substance: RASBURICASE
     Indication: Metabolic disorder prophylaxis
     Dosage: 7.5 MILLIGRAM
     Route: 042
     Dates: start: 20241101, end: 20241101
  69. DEXTROSE [Concomitant]
     Active Substance: DEXTROSE MONOHYDRATE
     Indication: Fluid replacement
     Dosage: 250 MILLILITER   ??FKI
     Route: 042
     Dates: start: 20241105, end: 20241125
  70. AUGMENTIN [Concomitant]
     Active Substance: AMOXICILLIN\CLAVULANATE POTASSIUM
     Indication: Diarrhoea
     Dosage: 875/125 MG
     Route: 048
     Dates: start: 20250103, end: 20250107
  71. RINGER ACETAT [Concomitant]
     Indication: Fluid replacement
     Dosage: 1 MILLILITER
     Route: 042
     Dates: start: 20241105, end: 20241108
  72. PREDNISONE [Concomitant]
     Active Substance: PREDNISONE
     Indication: Antiinflammatory therapy
     Route: 065
     Dates: start: 20250129, end: 20250206
  73. Daflon [Concomitant]
     Indication: Prophylaxis
     Dosage: TIME INTERVAL: 0.33333333 DAYS
     Route: 048
     Dates: start: 20250110, end: 20250129
  74. MAALOX ANTACID [Concomitant]
     Active Substance: ALUMINUM HYDROXIDE\DIMETHICONE\MAGNESIUM HYDROXIDE
     Indication: Gastrointestinal disorder prophylaxis
     Route: 048
     Dates: start: 20250108, end: 20250129
  75. LEVOFLOXACIN [Concomitant]
     Active Substance: LEVOFLOXACIN
     Indication: Prophylaxis
     Dosage: TIME INTERVAL: AS NECESSARY
     Route: 048
     Dates: start: 20250205
  76. Tonimer panthexyl [Concomitant]
     Indication: Fall
     Dosage: TIME INTERVAL: 0.33333333 DAYS
     Route: 045
     Dates: start: 20250208, end: 20250308
  77. Gentalyn beta [Concomitant]
     Indication: Pain
     Route: 065
     Dates: start: 20250314
  78. AMLODIPINE\PERINDOPRIL [Concomitant]
     Active Substance: AMLODIPINE\PERINDOPRIL
     Indication: Hypertension
     Dosage: 10/5 MG, FREQUENCY TEXT: DAILY
     Route: 048
     Dates: start: 2021

REACTIONS (9)
  - Interstitial lung disease [Recovered/Resolved]
  - Diarrhoea [Recovered/Resolved]
  - Neutropenia [Unknown]
  - Sepsis [Recovered/Resolved]
  - Staphylococcal infection [Recovered/Resolved]
  - Neutropenia [Recovered/Resolved]
  - Neutropenia [Recovered/Resolved]
  - Epistaxis [Unknown]
  - Thrombocytopenia [Unknown]

NARRATIVE: CASE EVENT DATE: 20241101
